FAERS Safety Report 17146636 (Version 1)
Quarter: 2019Q4

REPORT INFORMATION
  Report Type: Spontaneous
  Country: CA (occurrence: CA)
  Receive Date: 20191212
  Receipt Date: 20191212
  Transmission Date: 20200122
  Serious: Yes (Other)
  Sender: FDA-Public Use
  Company Number: CA-ASTRAZENECA-2019SF78564

PATIENT
  Age: 53 Year
  Sex: Female

DRUGS (2)
  1. CRESTOR [Suspect]
     Active Substance: ROSUVASTATIN CALCIUM
     Dosage: 5.0MG UNKNOWN
     Route: 048
  2. NEXIUM [Suspect]
     Active Substance: ESOMEPRAZOLE MAGNESIUM
     Route: 048
     Dates: end: 2007

REACTIONS (7)
  - Hypotension [Unknown]
  - Liver injury [Unknown]
  - Thyroid cancer [Unknown]
  - Abdominal discomfort [Unknown]
  - Renal failure [Unknown]
  - Hypothyroidism [Unknown]
  - Thrombosis [Unknown]
